FAERS Safety Report 15583725 (Version 1)
Quarter: 2018Q4

REPORT INFORMATION
  Report Type: Spontaneous
  Country: TR (occurrence: TR)
  Receive Date: 20181105
  Receipt Date: 20181105
  Transmission Date: 20190205
  Serious: Yes (Other)
  Sender: FDA-Public Use
  Company Number: TR-SUN PHARMACEUTICAL INDUSTRIES LTD-2018RR-190151

PATIENT
  Age: 5 Year
  Sex: Female

DRUGS (3)
  1. FLUOXETINE [Suspect]
     Active Substance: FLUOXETINE HYDROCHLORIDE
     Indication: SEPARATION ANXIETY DISORDER
     Dosage: 5 MG, DAILY
     Route: 048
  2. FLUOXETINE [Suspect]
     Active Substance: FLUOXETINE HYDROCHLORIDE
     Dosage: DOSE INCREASED AFTER A WEEK
     Route: 048
  3. FLUOXETINE [Suspect]
     Active Substance: FLUOXETINE HYDROCHLORIDE
     Dosage: 5 MG, DAILY; DOSE REDUCED DUE TO SIDE EFFECTS
     Route: 065

REACTIONS (2)
  - Skin abrasion [Not Recovered/Not Resolved]
  - Obsessive-compulsive disorder [Recovered/Resolved]
